FAERS Safety Report 21284677 (Version 1)
Quarter: 2022Q3

REPORT INFORMATION
  Report Type: Spontaneous
  Country: CN (occurrence: CN)
  Receive Date: 20220902
  Receipt Date: 20220902
  Transmission Date: 20221026
  Serious: Yes (Hospitalization, Other)
  Sender: FDA-Public Use
  Company Number: None

PATIENT
  Age: 52 Year
  Sex: Female
  Weight: 65 kg

DRUGS (4)
  1. CYCLOPHOSPHAMIDE [Suspect]
     Active Substance: CYCLOPHOSPHAMIDE
     Indication: Invasive breast carcinoma
     Dosage: 0.9G, QD, DILUTED WITH 0.9% SODIUM CHLORIDE INJECTION 100 ML)
     Route: 041
     Dates: start: 20220805, end: 20220805
  2. SODIUM CHLORIDE [Suspect]
     Active Substance: SODIUM CHLORIDE
     Indication: Medication dilution
     Dosage: 100ML, QD, DILUTED IN CYCLOPHOSPHAMIDE 0.9G)
     Route: 041
     Dates: start: 20220805, end: 20220805
  3. SODIUM CHLORIDE [Suspect]
     Active Substance: SODIUM CHLORIDE
     Dosage: 100ML, QD, DILUTED IN PIRARUBICIN HYDROCHLORIDE INJECTION 60 MG)
     Route: 042
     Dates: start: 20220805, end: 20220805
  4. PIRARUBICIN HYDROCHLORIDE [Suspect]
     Active Substance: PIRARUBICIN HYDROCHLORIDE
     Indication: Invasive breast carcinoma
     Dosage: 60MG, QD, DILUTED WITH 0.9% SODIUM CHLORIDE INJECTION 100ML)
     Route: 041
     Dates: start: 20220805, end: 20220805

REACTIONS (2)
  - Hyperpyrexia [Recovering/Resolving]
  - Myelosuppression [Recovering/Resolving]

NARRATIVE: CASE EVENT DATE: 20220813
